FAERS Safety Report 5532787-9 (Version None)
Quarter: 2007Q4

REPORT INFORMATION
  Report Type: 
  Country: None (occurrence: None)
  Receive Date: 20071129
  Receipt Date: 20071120
  Transmission Date: 20080405
  Serious: Yes (Congenital Anomaly, Other)
  Sender: FDA-Public Use
  Company Number: S07-USA-02894-02

PATIENT
  Sex: Female

DRUGS (2)
  1. LEXAPRO [Suspect]
     Dosage: 20 MG QD TRANSPLACENTAL
     Route: 064
     Dates: start: 20061101, end: 20070801
  2. PRENATAL VITAMINS [Concomitant]

REACTIONS (3)
  - CONGENITAL OVARIAN ANOMALY [None]
  - DRUG EXPOSURE DURING PREGNANCY [None]
  - OVARIAN CYST [None]
